FAERS Safety Report 10818663 (Version 2)
Quarter: 2015Q1

REPORT INFORMATION
  Report Type: Spontaneous
  Country: US (occurrence: US)
  Receive Date: 20150218
  Receipt Date: 20150224
  Transmission Date: 20150721
  Serious: No
  Sender: FDA-Public Use
  Company Number: US-009507513-1502USA006368

PATIENT
  Sex: Female
  Weight: 47.17 kg

DRUGS (7)
  1. LINZESS [Concomitant]
     Active Substance: LINACLOTIDE
     Indication: GASTROINTESTINAL DISORDER THERAPY
     Dosage: UNK, UNKNOWN
  2. PHILLIPS LAXATIVE CAPLETS [Concomitant]
     Indication: GASTROINTESTINAL DISORDER THERAPY
     Dosage: UNK, UNKNOWN
  3. MIRALAX [Suspect]
     Active Substance: POLYETHYLENE GLYCOL 3350
     Dosage: 17-34 G, 1-3 TIMES A DAY
     Route: 048
     Dates: start: 1999
  4. RESOLOR [Concomitant]
     Active Substance: PRUCALOPRIDE SUCCINATE
     Indication: GASTROINTESTINAL DISORDER THERAPY
     Dosage: UNK, UNKNOWN
  5. LEVOTHYROXINE SODIUM. [Concomitant]
     Active Substance: LEVOTHYROXINE SODIUM
     Indication: THYROID THERAPY
     Dosage: UNK, UNKNOWN
  6. MIRALAX [Suspect]
     Active Substance: POLYETHYLENE GLYCOL 3350
     Indication: CONSTIPATION
     Dosage: 17-34 G, 1-3 TIMES A DAY
     Route: 048
     Dates: start: 1999
  7. LIOTHYRONINE SODIUM. [Concomitant]
     Active Substance: LIOTHYRONINE SODIUM
     Indication: THYROID THERAPY
     Dosage: UNK, UNKNOWN

REACTIONS (4)
  - Product odour abnormal [Unknown]
  - Overdose [Unknown]
  - Inappropriate schedule of drug administration [Unknown]
  - Product taste abnormal [Unknown]
